FAERS Safety Report 10379158 (Version 2)
Quarter: 2014Q3

REPORT INFORMATION
  Report Type: Spontaneous
  Country: IT (occurrence: IT)
  Receive Date: 20140812
  Receipt Date: 20140923
  Transmission Date: 20150326
  Serious: Yes (Hospitalization)
  Sender: FDA-Public Use
  Company Number: IT-GLAXOSMITHKLINE-B1011535A

PATIENT
  Age: 75 Year
  Sex: Male

DRUGS (1)
  1. PROPAFENONE. [Suspect]
     Active Substance: PROPAFENONE
     Indication: ARRHYTHMIA
     Dosage: 2UNIT UNKNOWN
     Route: 048
     Dates: start: 20140416, end: 20140623

REACTIONS (3)
  - Syncope [Unknown]
  - Head injury [Recovering/Resolving]
  - Sinus bradycardia [Unknown]

NARRATIVE: CASE EVENT DATE: 20140623
